FAERS Safety Report 8598240-3 (Version None)
Quarter: 2012Q3

REPORT INFORMATION
  Report Type: 
  Country: None (occurrence: None)
  Receive Date: 20120802
  Receipt Date: 20120723
  Transmission Date: 20120928
  Serious: Yes (Life-Threatening, Hospitalization)
  Sender: FDA-Public Use
  Company Number: 2012P1051202

PATIENT
  Age: 25 Year
  Sex: Female
  Weight: 70 kg

DRUGS (2)
  1. DIPHENHYDRAMINE HCL [Suspect]
     Indication: SUICIDE ATTEMPT
     Dosage: 100 MG;X1;PO
     Route: 048
  2. ACETAMINOPHEN [Suspect]
     Indication: SUICIDE ATTEMPT
     Dosage: 46.8 GM;X1;PO
     Route: 048

REACTIONS (4)
  - SUICIDE ATTEMPT [None]
  - DRUG HALF-LIFE INCREASED [None]
  - GASTROINTESTINAL HYPOMOTILITY [None]
  - INCORRECT DOSE ADMINISTERED [None]
